FAERS Safety Report 6809338-1 (Version None)
Quarter: 2010Q2

REPORT INFORMATION
  Report Type: 
  Country: None (occurrence: None)
  Receive Date: 20100630
  Receipt Date: 20100621
  Transmission Date: 20101027
  Serious: Yes (Disabling)
  Sender: FDA-Public Use
  Company Number: UA-BAYER-201029584GPV

PATIENT
  Age: 49 Year
  Sex: Female

DRUGS (1)
  1. MIRENA [Suspect]
     Indication: UTERINE POLYP
     Route: 015
     Dates: start: 20070101, end: 20100331

REACTIONS (1)
  - ENDOMETRIAL CANCER [None]
